FAERS Safety Report 9342529 (Version 2)
Quarter: 2013Q3

REPORT INFORMATION
  Report Type: Spontaneous
  Country: US (occurrence: US)
  Receive Date: 20130611
  Receipt Date: 20130701
  Transmission Date: 20140515
  Serious: Yes (Hospitalization, Other)
  Sender: FDA-Public Use
  Company Number: US-TEVA-410661USA

PATIENT
  Age: 59 Year
  Sex: Male

DRUGS (1)
  1. COPAXONE [Suspect]
     Indication: MULTIPLE SCLEROSIS
     Route: 058
     Dates: start: 20070201

REACTIONS (4)
  - Coronary artery occlusion [Unknown]
  - Cardiac arrest [Unknown]
  - Myocardial infarction [Unknown]
  - Dyspnoea [Unknown]
